FAERS Safety Report 15815071 (Version 1)
Quarter: 2019Q1

REPORT INFORMATION
  Report Type: Spontaneous
  Country: ES (occurrence: ES)
  Receive Date: 20190112
  Receipt Date: 20190112
  Transmission Date: 20190417
  Serious: Yes (Other)
  Sender: FDA-Public Use
  Company Number: ES-TEVA-2019-ES-997868

PATIENT
  Age: 58 Year
  Sex: Female

DRUGS (1)
  1. PRAVASTATINA (7192A) [Suspect]
     Active Substance: PRAVASTATIN SODIUM
     Route: 065
     Dates: start: 20181106

REACTIONS (1)
  - Hypertransaminasaemia [Recovering/Resolving]

NARRATIVE: CASE EVENT DATE: 20181106
